FAERS Safety Report 13674338 (Version 1)
Quarter: 2017Q2

REPORT INFORMATION
  Report Type: Spontaneous
  Country: FR (occurrence: FR)
  Receive Date: 20170621
  Receipt Date: 20170621
  Transmission Date: 20170830
  Serious: Yes (Hospitalization, Other)
  Sender: FDA-Public Use
  Company Number: FR-GILEAD-2017-0278964

PATIENT
  Age: 27 Year
  Sex: Male

DRUGS (6)
  1. MALOCIDE                           /00112501/ [Concomitant]
     Active Substance: PYRIMETHAMINE
  2. TRAMADOL. [Concomitant]
     Active Substance: TRAMADOL
  3. GENVOYA [Suspect]
     Active Substance: COBICISTAT\ELVITEGRAVIR\EMTRICITABINE\TENOFOVIR ALAFENAMIDE FUMARATE
     Indication: HIV TEST POSITIVE
     Dosage: UNK
     Route: 048
     Dates: start: 20170516, end: 20170523
  4. PARACETAMOL [Concomitant]
     Active Substance: ACETAMINOPHEN
  5. ADIAZINE [Suspect]
     Active Substance: SULFADIAZINE
     Indication: TOXOPLASMOSIS
     Dosage: UNK
     Route: 048
     Dates: start: 20170511, end: 20170523
  6. FOLINIC ACID [Concomitant]
     Active Substance: LEUCOVORIN

REACTIONS (2)
  - Cholestasis [Recovering/Resolving]
  - Hepatocellular injury [Recovering/Resolving]

NARRATIVE: CASE EVENT DATE: 20170519
